FAERS Safety Report 21307203 (Version 1)
Quarter: 2022Q3

REPORT INFORMATION
  Report Type: Spontaneous
  Country: US (occurrence: None)
  Receive Date: 20220907
  Receipt Date: 20220907
  Transmission Date: 20221027
  Serious: Yes (Hospitalization)
  Sender: FDA-Public Use
  Company Number: None

PATIENT
  Age: 58 Year
  Sex: Female

DRUGS (1)
  1. SAFEGUARD HAND SANITIZER FRESH CLEAN SCENT [Suspect]
     Active Substance: ALCOHOL
     Dosage: OTHER QUANTITY : A QUARTER SIZE;?FREQUENCY : DAILY;?
     Route: 061
     Dates: start: 202206

REACTIONS (6)
  - Swelling face [None]
  - Eye swelling [None]
  - Peripheral swelling [None]
  - Eczema [None]
  - Blister [None]
  - Peripheral swelling [None]
